FAERS Safety Report 24427325 (Version 1)
Quarter: 2024Q4

REPORT INFORMATION
  Report Type: Other
  Country: CA (occurrence: CA)
  Receive Date: 20241011
  Receipt Date: 20241011
  Transmission Date: 20250115
  Serious: Yes (Other)
  Sender: PFIZER
  Company Number: CA-PFIZER INC-202400274418

PATIENT

DRUGS (3)
  1. TOFACITINIB CITRATE [Suspect]
     Active Substance: TOFACITINIB CITRATE
     Indication: Myositis
  2. MYCOPHENOLATE MOFETIL [Suspect]
     Active Substance: MYCOPHENOLATE MOFETIL
     Indication: Myositis
  3. PREDNISONE [Suspect]
     Active Substance: PREDNISONE
     Indication: Myositis

REACTIONS (2)
  - Epstein-Barr virus associated lymphoma [Unknown]
  - Off label use [Unknown]
